FAERS Safety Report 5616651-2 (Version None)
Quarter: 2008Q1

REPORT INFORMATION
  Report Type: 
  Country: None (occurrence: None)
  Receive Date: 20080206
  Receipt Date: 20080206
  Transmission Date: 20080703
  Serious: Yes (Hospitalization)
  Sender: FDA-Public Use
  Company Number: None

PATIENT
  Age: 51 Year
  Sex: Male
  Weight: 71.7 kg

DRUGS (2)
  1. MYFORTIC [Suspect]
     Indication: RENAL FAILURE CHRONIC
     Dosage: 360MG BID PO
     Route: 048
     Dates: start: 20061015, end: 20070823
  2. RAPAMUNE [Suspect]
     Indication: IMMUNOSUPPRESSANT DRUG THERAPY
     Dosage: 2MG  BID  PO
     Route: 048
     Dates: start: 20061015, end: 20070823

REACTIONS (2)
  - KIDNEY TRANSPLANT REJECTION [None]
  - THERAPY REGIMEN CHANGED [None]
